FAERS Safety Report 5039155-7 (Version None)
Quarter: 2006Q2

REPORT INFORMATION
  Report Type: 
  Country: None (occurrence: None)
  Receive Date: 20060629
  Receipt Date: 20060621
  Transmission Date: 20061013
  Serious: Yes (Hospitalization)
  Sender: FDA-Public Use
  Company Number: M300083-301-B

PATIENT
  Age: 74 Year
  Sex: Male

DRUGS (4)
  1. ROPINIROLE [Suspect]
     Indication: PARKINSON'S DISEASE
     Dosage: 1MG THREE TIMES PER DAY
     Route: 048
     Dates: start: 20051125, end: 20060523
  2. INVESTIGATIONAL STUDY DRUG [Suspect]
     Indication: PARKINSON'S DISEASE
     Route: 048
     Dates: start: 20060519, end: 20060523
  3. MADOPAR [Suspect]
     Indication: PARKINSON'S DISEASE
     Route: 048
     Dates: start: 20060501
  4. MESULID [Concomitant]
     Route: 048

REACTIONS (2)
  - PARANOIA [None]
  - PSYCHOTIC DISORDER [None]
